FAERS Safety Report 18273997 (Version 1)
Quarter: 2020Q3

REPORT INFORMATION
  Report Type: Spontaneous
  Country: US (occurrence: US)
  Receive Date: 20200916
  Receipt Date: 20200916
  Transmission Date: 20201103
  Serious: Yes (Other)
  Sender: FDA-Public Use
  Company Number: US-PFIZER INC-2020356539

PATIENT
  Age: 34 Year
  Sex: Female
  Weight: 78 kg

DRUGS (11)
  1. PANCURONIUM BROMIDE. [Suspect]
     Active Substance: PANCURONIUM BROMIDE
     Indication: MAINTENANCE OF ANAESTHESIA
     Dosage: 4 MG
  2. TUBOCURARINE CHLORIDE [Concomitant]
     Active Substance: TUBOCURARINE CHLORIDE
     Indication: INDUCTION OF ANAESTHESIA
     Dosage: 3 MG
     Route: 042
  3. SUCCINYLCHOLINE [SUXAMETHONIUM] [Concomitant]
     Active Substance: SUCCINYLCHOLINE
     Indication: INDUCTION OF ANAESTHESIA
     Dosage: 100 MG
  4. ATENOLOL. [Concomitant]
     Active Substance: ATENOLOL
     Dosage: 50 MG (MORNING OF SURGERY)
     Route: 048
  5. PROMETHAZINE [Concomitant]
     Active Substance: PROMETHAZINE HYDROCHLORIDE
     Dosage: 25 MG (MORNING OF SURGERY)
  6. MEPERIDINE [Concomitant]
     Active Substance: MEPERIDINE
     Dosage: 75 MG (MORNING OF SURGERY)
     Route: 030
  7. GLYCOPYRROLATE [GLYCOPYRRONIUM BROMIDE] [Concomitant]
     Active Substance: GLYCOPYRROLATE
     Dosage: 0.2 MG (MORNING OF SURGERY)
  8. LACTATED RINGERS SOLUTION [Concomitant]
     Active Substance: CALCIUM CHLORIDE\POTASSIUM CHLORIDE\SODIUM CHLORIDE\SODIUM LACTATE
     Dosage: UNK
  9. THIOPENTAL SODIUM. [Concomitant]
     Active Substance: THIOPENTAL SODIUM
     Indication: INDUCTION OF ANAESTHESIA
     Dosage: 450 MG
  10. ISOFLURANE. [Suspect]
     Active Substance: ISOFLURANE
     Indication: MAINTENANCE OF ANAESTHESIA
     Dosage: UNK
  11. NITROUS OXIDE. [Suspect]
     Active Substance: NITROUS OXIDE
     Indication: MAINTENANCE OF ANAESTHESIA
     Dosage: UNK

REACTIONS (2)
  - Sinus tachycardia [Recovered/Resolved]
  - Hypertension [Recovered/Resolved]
